FAERS Safety Report 6238733-7 (Version None)
Quarter: 2009Q2

REPORT INFORMATION
  Report Type: 
  Country: None (occurrence: None)
  Receive Date: 20090617
  Receipt Date: 20090617
  Transmission Date: 20091009
  Serious: Yes (Life-Threatening, Hospitalization)
  Sender: FDA-Public Use
  Company Number: None

PATIENT
  Age: 39 Year
  Sex: Female
  Weight: 68.0396 kg

DRUGS (1)
  1. ZONISAMIDE [Suspect]
     Indication: EATING DISORDER
     Dosage: 200 MG 1 DAILY PO
     Route: 048
     Dates: start: 20090110, end: 20090616

REACTIONS (12)
  - ASTHENIA [None]
  - BALANCE DISORDER [None]
  - CARDIAC MURMUR [None]
  - DISORIENTATION [None]
  - DYSPNOEA [None]
  - FATIGUE [None]
  - HYPOAESTHESIA [None]
  - PALLOR [None]
  - PARAESTHESIA [None]
  - SPEECH DISORDER [None]
  - STRESS [None]
  - VERTIGO [None]
